FAERS Safety Report 9097148 (Version 5)
Quarter: 2013Q3

REPORT INFORMATION
  Report Type: Spontaneous
  Country: US (occurrence: US)
  Receive Date: 20130212
  Receipt Date: 20130703
  Transmission Date: 20140515
  Serious: Yes (Hospitalization, Other)
  Sender: FDA-Public Use
  Company Number: US-009507513-1302USA004393

PATIENT
  Sex: Female

DRUGS (5)
  1. FOSAMAX [Suspect]
     Indication: OSTEOPOROSIS
     Dosage: 70 MG, UNK
     Route: 048
     Dates: start: 200202
  2. FOSAMAX PLUS D [Suspect]
     Indication: OSTEOPOROSIS
     Dosage: 70 MG, 2800 IU UNK
     Route: 048
  3. FOSAMAX PLUS D [Suspect]
     Dosage: 70 MG, 5600 IU UNK
     Route: 048
  4. ALENDRONATE SODIUM [Suspect]
     Indication: OSTEOPOROSIS
     Dosage: 70 MG, UNK
     Route: 048
     Dates: start: 201008, end: 201107
  5. PRILOSEC [Concomitant]
     Indication: GASTROOESOPHAGEAL REFLUX DISEASE
     Dosage: UNK
     Dates: start: 1990

REACTIONS (16)
  - Intramedullary rod insertion [Unknown]
  - Breast cancer [Unknown]
  - Cholecystectomy [Unknown]
  - Hysterectomy [Unknown]
  - Malignant breast lump removal [Unknown]
  - Femur fracture [Unknown]
  - Tooth extraction [Unknown]
  - Asthma [Unknown]
  - Urinary tract infection [Recovered/Resolved]
  - Culture urine positive [Unknown]
  - Bunion [Unknown]
  - Foot fracture [Unknown]
  - Treatment noncompliance [Unknown]
  - Hypertension [Unknown]
  - Osteopenia [Unknown]
  - Atrophy [Unknown]
